FAERS Safety Report 5755985-8 (Version None)
Quarter: 2008Q2

REPORT INFORMATION
  Report Type: 
  Country: None (occurrence: None)
  Receive Date: 20080602
  Receipt Date: 20080402
  Transmission Date: 20081010
  Serious: No
  Sender: FDA-Public Use
  Company Number: US-BAYER-200811377BCC

PATIENT
  Age: 72 Year
  Sex: Female
  Weight: 61 kg

DRUGS (5)
  1. ALEVE (CAPLET) [Suspect]
     Indication: NEURALGIA
     Dosage: TOTAL DAILY DOSE: 880 MG  UNIT DOSE: 220 MG
     Route: 048
     Dates: start: 20080330
  2. LEVOXYL [Concomitant]
  3. CYTOMEL [Concomitant]
  4. BONIVA [Concomitant]
  5. BACTRIM [Concomitant]

REACTIONS (1)
  - INSOMNIA [None]
